FAERS Safety Report 17343688 (Version 3)
Quarter: 2020Q1

REPORT INFORMATION
  Report Type: Spontaneous
  Country: AU (occurrence: AU)
  Receive Date: 20200129
  Receipt Date: 20200311
  Transmission Date: 20200409
  Serious: Yes (Hospitalization, Other)
  Sender: FDA-Public Use
  Company Number: AU-PFIZER INC-2020036395

PATIENT
  Age: 65 Year
  Sex: Female

DRUGS (1)
  1. EPINEPHRINE. [Suspect]
     Active Substance: EPINEPHRINE
     Dosage: 0.5 MG, UNK (1:1000)
     Route: 042

REACTIONS (7)
  - Incorrect route of product administration [Recovered/Resolved]
  - Blood pressure increased [Recovered/Resolved]
  - Myocardial necrosis [Recovered/Resolved]
  - Headache [Recovered/Resolved]
  - Anxiety [Recovered/Resolved]
  - Ventricular tachycardia [Recovering/Resolving]
  - Accidental overdose [Recovered/Resolved]

NARRATIVE: CASE EVENT DATE: 2019
